FAERS Safety Report 7327771-9 (Version None)
Quarter: 2011Q1

REPORT INFORMATION
  Report Type: 
  Country: None (occurrence: None)
  Receive Date: 20110224
  Receipt Date: 20110224
  Transmission Date: 20110831
  Serious: No
  Sender: FDA-Public Use
  Company Number: None

PATIENT
  Age: 48 Year
  Sex: Male

DRUGS (1)
  1. TERBINAFINE HCL [Suspect]
     Dates: start: 20090110, end: 20090206

REACTIONS (10)
  - LIVER INJURY [None]
  - FAECES DISCOLOURED [None]
  - CHROMATURIA [None]
  - BIOPSY LIVER ABNORMAL [None]
  - SLEEP DISORDER [None]
  - BLOOD BILIRUBIN INCREASED [None]
  - INFLUENZA LIKE ILLNESS [None]
  - ENCEPHALOPATHY [None]
  - PRURITUS [None]
  - CHOLESTASIS [None]
